FAERS Safety Report 5274551-4 (Version None)
Quarter: 2007Q1

REPORT INFORMATION
  Report Type: 
  Country: None (occurrence: None)
  Receive Date: 20070323
  Receipt Date: 20070314
  Transmission Date: 20070707
  Serious: Yes (Other)
  Sender: FDA-Public Use
  Company Number: CA-PFIZER INC-2007020499

PATIENT
  Sex: Male
  Weight: 224 kg

DRUGS (2)
  1. LYRICA [Suspect]
     Indication: HEADACHE
     Route: 048
     Dates: start: 20051130, end: 20060728
  2. LIDOCAINE [Suspect]
     Indication: PAIN
     Route: 042

REACTIONS (1)
  - HYPERTENSION [None]
